FAERS Safety Report 5720967-9 (Version None)
Quarter: 2008Q2

REPORT INFORMATION
  Report Type: 
  Country: None (occurrence: None)
  Receive Date: 20080425
  Receipt Date: 20080425
  Transmission Date: 20081010
  Serious: Yes (Hospitalization)
  Sender: FDA-Public Use
  Company Number: None

PATIENT
  Sex: Male
  Weight: 101.1521 kg

DRUGS (13)
  1. DASATINIB  50MG  BMS [Suspect]
     Indication: NEOPLASM MALIGNANT
     Dosage: 150MG QD PO
     Route: 048
     Dates: start: 20080409, end: 20080424
  2. CETUXIMAB  2MG/1CC  BMS [Suspect]
     Indication: NEOPLASM MALIGNANT
     Dosage: 250MG  Q WEEKX3 OUT OF 4  IV DRIP
     Route: 041
     Dates: start: 20080410, end: 20080424
  3. THYROID TAB [Concomitant]
  4. ALEVE [Concomitant]
  5. NORVASC [Concomitant]
  6. DIOVAN [Concomitant]
  7. ADVAIR HFA [Concomitant]
  8. CENTRUM SILVER [Concomitant]
  9. VITAMIN D [Concomitant]
  10. GLUCOSAMINE SULFATE [Concomitant]
  11. ZANTAC [Concomitant]
  12. ASPIRIN [Concomitant]
  13. COLACE [Concomitant]

REACTIONS (4)
  - DRUG HYPERSENSITIVITY [None]
  - HYPERTENSION [None]
  - INFUSION RELATED REACTION [None]
  - OXYGEN SATURATION DECREASED [None]
